FAERS Safety Report 4852690-7 (Version None)
Quarter: 2005Q4

REPORT INFORMATION
  Report Type: 
  Country: None (occurrence: None)
  Receive Date: 20051213
  Receipt Date: 20050715
  Transmission Date: 20060501
  Serious: Yes (Hospitalization, Other)
  Sender: FDA-Public Use
  Company Number: PHBS2005JP10263

PATIENT
  Age: 49 Year
  Sex: Male
  Weight: 72 kg

DRUGS (1)
  1. LAMISIL [Suspect]
     Indication: BODY TINEA
     Dosage: 125 MG/D
     Route: 048
     Dates: start: 20050622, end: 20050706

REACTIONS (11)
  - ACNE [None]
  - ACUTE GENERALISED EXANTHEMATOUS PUSTULOSIS [None]
  - C-REACTIVE PROTEIN INCREASED [None]
  - DRUG ERUPTION [None]
  - ERYTHEMA [None]
  - LYMPHOCYTE PERCENTAGE DECREASED [None]
  - LYMPHOCYTE STIMULATION TEST POSITIVE [None]
  - NEUTROPHIL PERCENTAGE INCREASED [None]
  - PYREXIA [None]
  - SKIN EXFOLIATION [None]
  - WHITE BLOOD CELL COUNT INCREASED [None]
